FAERS Safety Report 10307201 (Version 2)
Quarter: 2014Q3

REPORT INFORMATION
  Report Type: Report from Study
  Country: US (occurrence: US)
  Receive Date: 20140716
  Receipt Date: 20140716
  Transmission Date: 20150326
  Serious: No
  Sender: FDA-Public Use
  Company Number: US-009507513-2011SP029663

PATIENT
  Age: 27 Year
  Sex: Female

DRUGS (3)
  1. PEGINTRON [Suspect]
     Active Substance: PEGINTERFERON ALFA-2B
     Dosage: UNK
  2. REBETOL [Suspect]
     Active Substance: RIBAVIRIN
     Dosage: UNK
     Route: 048
  3. IRON (UNSPECIFIED) (+) MINERALS (UNSPECIFIED) (+) VITAMINS (UNSPECIFIE [Suspect]
     Active Substance: IRON\MINERALS\VITAMINS
     Indication: PREGNANCY
     Dosage: 1 TAB, UNK
     Dates: start: 20100308

REACTIONS (2)
  - Exposure via father [Unknown]
  - No adverse event [Unknown]
